FAERS Safety Report 10385047 (Version 1)
Quarter: 2014Q1

REPORT INFORMATION
  Report Type: Spontaneous
  Country: US (occurrence: None)
  Receive Date: 20140306
  Receipt Date: 20140306
  Transmission Date: 20141002
  Serious: Yes (Other)
  Sender: FDA-Public Use
  Company Number: 163-21880-13034020

PATIENT
  Age: 69 Year
  Sex: Male

DRUGS (11)
  1. REVLIMID (LENALIDOMIDE) (15 MILLIGRAM, CAPSULES) [Suspect]
     Indication: PLASMA CELL MYELOMA
     Route: 048
     Dates: start: 201206, end: 201209
  2. ACYCLOVIR (ACICLOVIR) (ACICLOVIR) [Concomitant]
  3. ASPIRIN [Concomitant]
  4. ATENOLOL [Concomitant]
  5. BACTRIM DS [Concomitant]
  6. COZAAR (LOSARTAN POTASSIUM) [Concomitant]
  7. FISH OIL [Concomitant]
  8. LIPITOR (ATORVASTATIN) [Concomitant]
  9. MAGNESIUM GLUCONATE [Concomitant]
  10. NEXIUM (ESOMEPRAZOLE) [Concomitant]
  11. AMBIEN (ZOLPIDEM TARTRATE) [Concomitant]

REACTIONS (3)
  - Dry eye [None]
  - Rash [None]
  - Pruritus [None]
